FAERS Safety Report 4409471-8 (Version None)
Quarter: 2004Q3

REPORT INFORMATION
  Report Type: 
  Country: None (occurrence: None)
  Receive Date: 20040723
  Receipt Date: 20040713
  Transmission Date: 20050211
  Serious: Yes (Other)
  Sender: FDA-Public Use
  Company Number: US-JNJFOC-20040703679

PATIENT
  Age: 87 Year
  Sex: Female
  Weight: 63.5036 kg

DRUGS (2)
  1. ULTARCET (TRAMADOL/APAP) TABLETS [Suspect]
     Indication: ARTHRALGIA
     Dosage: ORAL
     Route: 048
  2. NORVASC [Concomitant]

REACTIONS (1)
  - VISUAL DISTURBANCE [None]
